FAERS Safety Report 14525594 (Version 2)
Quarter: 2018Q2

REPORT INFORMATION
  Report Type: Spontaneous
  Country: AT (occurrence: AT)
  Receive Date: 20180213
  Receipt Date: 20180422
  Transmission Date: 20180711
  Serious: Yes (Disabling, Other)
  Sender: FDA-Public Use
  Company Number: AT-APOTEX-2018AP006394

PATIENT

DRUGS (2)
  1. BUPROPION HYDROCHLORIDE. [Suspect]
     Active Substance: BUPROPION HYDROCHLORIDE
     Dosage: UNK
     Route: 065
  2. PAROXETINE HYDROCHLORIDE. [Suspect]
     Active Substance: PAROXETINE HYDROCHLORIDE
     Route: 065

REACTIONS (6)
  - Seizure [Unknown]
  - Disability [Unknown]
  - Gastrointestinal injury [Unknown]
  - Impaired work ability [Unknown]
  - Off label use [Unknown]
  - Drug dependence [Unknown]
